FAERS Safety Report 14926449 (Version 1)
Quarter: 2018Q2

REPORT INFORMATION
  Report Type: Spontaneous
  Country: FR (occurrence: FR)
  Receive Date: 20180523
  Receipt Date: 20180523
  Transmission Date: 20180711
  Serious: Yes (Hospitalization)
  Sender: FDA-Public Use
  Company Number: FR-TEVA-2018-FR-895178

PATIENT
  Age: 47 Year
  Sex: Female
  Weight: 50 kg

DRUGS (2)
  1. IBUPROFENE [Suspect]
     Active Substance: IBUPROFEN
     Indication: NASOPHARYNGITIS
     Route: 048
     Dates: start: 20170208, end: 20170208
  2. BIOCALYPTOL-PHOLCODINE (BIOCALYPTOL-PHOLCODINE) (GUAIACOL, PHENOL, CINEOLE, PHOLCODINE, SODIUM CAMSYLATE) [Suspect]
     Active Substance: EUCALYPTOL\GUAIACOL\PHENOL\PHOLCODINE\SODIUM CAMPHORSULFONATE
     Indication: NASOPHARYNGITIS
     Route: 048
     Dates: start: 20170208, end: 20170208

REACTIONS (1)
  - Acute generalised exanthematous pustulosis [Recovered/Resolved]

NARRATIVE: CASE EVENT DATE: 20170208
